FAERS Safety Report 7821525-2 (Version None)
Quarter: 2011Q4

REPORT INFORMATION
  Report Type: 
  Country: None (occurrence: None)
  Receive Date: 20111018
  Receipt Date: 20111014
  Transmission Date: 20120403
  Serious: Yes (Hospitalization, Other)
  Sender: FDA-Public Use
  Company Number: FR-PFIZER INC-2011245645

PATIENT
  Age: 49 Year
  Sex: Female

DRUGS (8)
  1. SOLU-MEDROL [Suspect]
     Indication: PREMEDICATION
     Dosage: UNK %, UNK
     Route: 042
     Dates: start: 20110906, end: 20110911
  2. EMEND [Suspect]
     Indication: PREMEDICATION
     Dosage: UNK
     Route: 042
     Dates: start: 20110906, end: 20110911
  3. PLITICAN [Suspect]
     Indication: PREMEDICATION
     Dosage: UNK
     Route: 042
     Dates: start: 20110906
  4. KETOPROFEN [Suspect]
     Dosage: UNK
     Route: 048
  5. CISPLATIN [Suspect]
     Indication: CERVIX CARCINOMA
     Dosage: UNK
     Route: 042
     Dates: start: 20110907, end: 20110908
  6. ACETAMINOPHEN [Suspect]
     Dosage: UNK
     Route: 048
  7. HYCAMTIN [Suspect]
     Indication: CERVIX CARCINOMA
     Dosage: UNK %, UNK
     Route: 042
     Dates: start: 20110907, end: 20110909
  8. TRAMADOL HCL [Suspect]
     Dosage: 100 MG, 3X/DAY
     Route: 048
     Dates: start: 20110906

REACTIONS (1)
  - THROMBOCYTOSIS [None]
